FAERS Safety Report 19920837 (Version 2)
Quarter: 2022Q4

REPORT INFORMATION
  Report Type: Spontaneous
  Country: US (occurrence: US)
  Receive Date: 20211005
  Receipt Date: 20221018
  Transmission Date: 20230113
  Serious: No
  Sender: FDA-Public Use
  Company Number: US-ADAMAS PHARMA, LLC-2021ADA01870

PATIENT
  Age: 72 Year
  Sex: Male

DRUGS (7)
  1. GOCOVRI [Suspect]
     Active Substance: AMANTADINE
     Indication: Dyskinesia
     Dosage: UNK
     Route: 048
     Dates: start: 20190203
  2. GOCOVRI [Suspect]
     Active Substance: AMANTADINE
     Indication: Parkinson^s disease
  3. DEVICE [Suspect]
     Active Substance: DEVICE
     Dosage: UNK
     Dates: end: 20210808
  4. DEVICE [Suspect]
     Active Substance: DEVICE
     Dosage: ^ADJUSTED SETTINGS^
     Dates: start: 20210809
  5. ONGENTYS [Suspect]
     Active Substance: OPICAPONE
     Dosage: 50 MG ALONG WITH GOCOVRI
     Dates: start: 20210809
  6. CARBIDOPA\LEVODOPA [Suspect]
     Active Substance: CARBIDOPA\LEVODOPA
     Dosage: UNK
     Dates: end: 20210808
  7. CARBIDOPA\LEVODOPA [Suspect]
     Active Substance: CARBIDOPA\LEVODOPA
     Dosage: ^REDUCED^ DOSE
     Dates: start: 20210809

REACTIONS (10)
  - Malaise [Unknown]
  - Visual impairment [Not Recovered/Not Resolved]
  - Cognitive disorder [Unknown]
  - Mental fatigue [Not Recovered/Not Resolved]
  - Anger [Unknown]
  - On and off phenomenon [Unknown]
  - Fall [Unknown]
  - Constipation [Not Recovered/Not Resolved]
  - Gait disturbance [Unknown]
  - Unevaluable event [Not Recovered/Not Resolved]

NARRATIVE: CASE EVENT DATE: 20210712
